FAERS Safety Report 14799243 (Version 1)
Quarter: 2018Q2

REPORT INFORMATION
  Report Type: Spontaneous
  Country: JP (occurrence: JP)
  Receive Date: 20180424
  Receipt Date: 20180424
  Transmission Date: 20180711
  Serious: Yes (Hospitalization, Other)
  Sender: FDA-Public Use
  Company Number: JP-GLAXOSMITHKLINE-JP2018JPN068862

PATIENT
  Age: 81 Year
  Sex: Female
  Weight: 80 kg

DRUGS (5)
  1. RAPIVIR [Suspect]
     Active Substance: VALACYCLOVIR HYDROCHLORIDE
     Indication: HERPES ZOSTER
     Dosage: 3000 MG, 1D
     Route: 048
     Dates: start: 20171222, end: 20171227
  2. ATORVASTATIN [Concomitant]
     Active Substance: ATORVASTATIN
     Dosage: 5 MG, UNK
  3. DEPAKENE [Concomitant]
     Active Substance: VALPROIC ACID
     Dosage: 200 MG, UNK
  4. PURSENNID [Concomitant]
     Active Substance: SENNOSIDES A AND B
     Dosage: 12 MG, UNK
  5. METHYCOBIDE [Concomitant]
     Active Substance: METHYLCOBALAMIN
     Dosage: 500 ?G, UNK

REACTIONS (4)
  - Somnolence [Unknown]
  - Acute kidney injury [Recovering/Resolving]
  - Toxic encephalopathy [Unknown]
  - Altered state of consciousness [Recovering/Resolving]

NARRATIVE: CASE EVENT DATE: 20171225
